FAERS Safety Report 25932483 (Version 2)
Quarter: 2025Q4

REPORT INFORMATION
  Report Type: Report from Study
  Country: US (occurrence: US)
  Receive Date: 20251017
  Receipt Date: 20251029
  Transmission Date: 20260118
  Serious: No
  Sender: ABBVIE
  Company Number: US-ABBVIE-6506608

PATIENT
  Age: 68 Year
  Sex: Female
  Weight: 51.255 kg

DRUGS (1)
  1. CREON [Suspect]
     Active Substance: PANCRELIPASE AMYLASE\PANCRELIPASE LIPASE\PANCRELIPASE PROTEASE
     Indication: Pancreatic failure
     Dosage: FORM STRENGTH: 12000 UNIT?FREQUENCY: 2 EACH MEAL, 1 EACH SNACK
     Route: 048
     Dates: start: 20250602

REACTIONS (1)
  - Complement factor abnormal [Unknown]

NARRATIVE: CASE EVENT DATE: 20251007
